FAERS Safety Report 18774078 (Version 6)
Quarter: 2022Q1

REPORT INFORMATION
  Report Type: Spontaneous
  Country: IN (occurrence: IN)
  Receive Date: 20210122
  Receipt Date: 20220131
  Transmission Date: 20220423
  Serious: Yes (Other)
  Sender: FDA-Public Use
  Company Number: IN-PFIZER INC-2020259854

PATIENT
  Age: 26 Year
  Sex: Female

DRUGS (3)
  1. SUTENT [Suspect]
     Active Substance: SUNITINIB MALATE
     Indication: Gastrointestinal stromal tumour
     Dosage: UNK
     Route: 048
     Dates: start: 20200630
  2. SUTENT [Suspect]
     Active Substance: SUNITINIB MALATE
     Dosage: 50 MG, 1X/DAY, 14 DAYS/7 DAYS OFF -2 CYCLE
     Route: 048
     Dates: start: 20200702
  3. SUTENT [Suspect]
     Active Substance: SUNITINIB MALATE
     Dosage: 37.5 MG, 1X/DAY 0-0-1 X 14 DAYS/7 DAYS OFF -1 CYCLE
     Route: 048
     Dates: start: 20210719

REACTIONS (9)
  - Ascites [Recovering/Resolving]
  - Pericardial effusion [Unknown]
  - Neoplasm progression [Recovering/Resolving]
  - Mucosal inflammation [Unknown]
  - Face oedema [Unknown]
  - Skin toxicity [Unknown]
  - Abdominal distension [Unknown]
  - Fatigue [Unknown]
  - Pleural effusion [Unknown]

NARRATIVE: CASE EVENT DATE: 20200910
